FAERS Safety Report 6789545-7 (Version None)
Quarter: 2010Q2

REPORT INFORMATION
  Report Type: 
  Country: None (occurrence: None)
  Receive Date: 20100624
  Receipt Date: 20100615
  Transmission Date: 20101027
  Serious: Yes (Hospitalization)
  Sender: FDA-Public Use
  Company Number: US-BIOGENIDEC-2009BI023740

PATIENT
  Age: 53 Year
  Sex: Female
  Weight: 68 kg

DRUGS (9)
  1. TYSABRI [Suspect]
     Indication: MULTIPLE SCLEROSIS
     Route: 042
     Dates: start: 20080506
  2. ZYPREXA [Concomitant]
     Indication: ANXIETY
     Dates: start: 20030101
  3. ZYPREXA [Concomitant]
     Indication: DEPRESSION
     Dates: start: 20030101
  4. REMERON [Concomitant]
     Indication: ANXIETY
     Dates: start: 20030101
  5. REMERON [Concomitant]
     Indication: DEPRESSION
     Dates: start: 20030101
  6. XANAX [Concomitant]
     Indication: ANXIETY
     Dates: start: 20030101
  7. XANAX [Concomitant]
     Indication: DEPRESSION
     Dates: start: 20030101
  8. ZOLOFT [Concomitant]
     Indication: ANXIETY
  9. ZOLOFT [Concomitant]
     Indication: DEPRESSION

REACTIONS (2)
  - APPENDICITIS [None]
  - POSTOPERATIVE WOUND INFECTION [None]
